FAERS Safety Report 7544342-X (Version None)
Quarter: 2011Q2

REPORT INFORMATION
  Report Type: 
  Country: None (occurrence: None)
  Receive Date: 20110613
  Receipt Date: 20080109
  Transmission Date: 20111010
  Serious: Yes (Life-Threatening, Hospitalization, Other)
  Sender: FDA-Public Use
  Company Number: PHFR2007GB03294

PATIENT
  Sex: Male

DRUGS (1)
  1. CLOZAPINE [Suspect]
     Indication: SCHIZOPHRENIA
     Dosage: 600 MG, DAILY
     Route: 048
     Dates: start: 19951005, end: 20020620

REACTIONS (7)
  - PELVIC FRACTURE [None]
  - FALL [None]
  - SKELETAL INJURY [None]
  - SUICIDE ATTEMPT [None]
  - AORTIC RUPTURE [None]
  - AORTIC INJURY [None]
  - HALLUCINATION, AUDITORY [None]
